FAERS Safety Report 17708019 (Version 1)
Quarter: 2020Q2

REPORT INFORMATION
  Report Type: Spontaneous
  Country: FR (occurrence: FR)
  Receive Date: 20200425
  Receipt Date: 20200425
  Transmission Date: 20200714
  Serious: Yes (Other)
  Sender: FDA-Public Use
  Company Number: FR-ADVANZ PHARMA-MAPI_00011385

PATIENT

DRUGS (3)
  1. HYDROXYCHLOROQUINE [Suspect]
     Active Substance: HYDROXYCHLOROQUINE
     Indication: WHIPPLE^S DISEASE
     Dosage: 600 MG, QD
     Route: 065
  2. DOXYCYCLINE. [Concomitant]
     Active Substance: DOXYCYCLINE
     Dosage: UNK
  3. HYDROXYCHLOROQUINE [Suspect]
     Active Substance: HYDROXYCHLOROQUINE
     Dosage: UNK
     Route: 065

REACTIONS (7)
  - Cardiac function test abnormal [Recovered/Resolved]
  - Tachycardia [Recovered/Resolved]
  - Product use in unapproved indication [Recovered/Resolved]
  - Cardiotoxicity [Recovered/Resolved]
  - Sinus tachycardia [Recovered/Resolved]
  - Ejection fraction decreased [Recovered/Resolved]
  - Ventricular hypokinesia [Recovered/Resolved]
